FAERS Safety Report 10273750 (Version 1)
Quarter: 2014Q3

REPORT INFORMATION
  Report Type: Report from Study
  Country: AR (occurrence: AR)
  Receive Date: 20140702
  Receipt Date: 20140702
  Transmission Date: 20150326
  Serious: Yes (Other)
  Sender: FDA-Public Use
  Company Number: PHHY2014AR081522

PATIENT
  Sex: Male

DRUGS (4)
  1. EXFORGE [Suspect]
     Active Substance: AMLODIPINE BESYLATE\VALSARTAN
     Dosage: UNK UKN, UNK
  2. RASILEZ [Suspect]
     Active Substance: ALISKIREN
     Dosage: UNK UKN, UNK
  3. GALVUS [Suspect]
     Active Substance: VILDAGLIPTIN
     Dosage: UNK UKN, UNK
  4. LUCENTIS [Suspect]
     Active Substance: RANIBIZUMAB
     Dosage: UNK UKN, UNK

REACTIONS (2)
  - Blindness [Unknown]
  - Diabetes mellitus [Unknown]

NARRATIVE: CASE EVENT DATE: 2013
